FAERS Safety Report 4839926-3 (Version None)
Quarter: 2005Q4

REPORT INFORMATION
  Report Type: 
  Country: None (occurrence: None)
  Receive Date: 20051125
  Receipt Date: 20051111
  Transmission Date: 20060501
  Serious: Yes (Death)
  Sender: FDA-Public Use
  Company Number: 217675

PATIENT
  Age: 68 Year
  Sex: Male

DRUGS (11)
  1. RITUXAN [Suspect]
     Indication: NON-HODGKIN'S LYMPHOMA
     Dosage: SEE IMAGE
     Dates: start: 20050628, end: 20050628
  2. RITUXAN [Suspect]
     Indication: NON-HODGKIN'S LYMPHOMA
     Dosage: SEE IMAGE
     Dates: start: 20050531, end: 20050726
  3. RITUXAN [Suspect]
     Indication: NON-HODGKIN'S LYMPHOMA
     Dosage: SEE IMAGE
     Dates: start: 20050726, end: 20050726
  4. CYCLOPHOSPHAMIDE [Concomitant]
  5. ADRIAMYCIN PFS [Concomitant]
  6. ONCOVIN [Concomitant]
  7. PREDONINE (PREDNISOLONE SODIUM SUCCINATE, PREDNISOLONE ACETATE, PREDNI [Concomitant]
  8. NARTOGRASTIM (NARTOGRASTIM) [Concomitant]
  9. DALTEPARIN SODIUM (DALTEPARIN SODIUM) [Concomitant]
  10. PENTAMIDINE ISETHIONATE (PENTAMIDINE) [Concomitant]
  11. MEROPENEM                   (MEROPENEM) [Concomitant]

REACTIONS (6)
  - ACUTE RESPIRATORY DISTRESS SYNDROME [None]
  - DEPRESSED LEVEL OF CONSCIOUSNESS [None]
  - HEART RATE DECREASED [None]
  - HEPATIC FAILURE [None]
  - PO2 DECREASED [None]
  - RENAL FAILURE [None]
